FAERS Safety Report 15618037 (Version 2)
Quarter: 2018Q4

REPORT INFORMATION
  Report Type: Report from Study
  Country: US (occurrence: US)
  Receive Date: 20181114
  Receipt Date: 20181218
  Transmission Date: 20190205
  Serious: Yes (Hospitalization)
  Sender: FDA-Public Use
  Company Number: US-ACTELION-A-NJ2015-125075

PATIENT
  Age: 64 Year
  Sex: Female
  Weight: 58.5 kg

DRUGS (2)
  1. ADCIRCA [Concomitant]
     Active Substance: TADALAFIL
  2. OPSUMIT [Suspect]
     Active Substance: MACITENTAN
     Indication: PULMONARY ARTERIAL HYPERTENSION
     Dosage: 10 MG, QD
     Route: 048
     Dates: start: 20150508

REACTIONS (7)
  - Bladder operation [Unknown]
  - Vertigo [Not Recovered/Not Resolved]
  - Seasonal allergy [Unknown]
  - Dizziness [Not Recovered/Not Resolved]
  - Sinusitis [Unknown]
  - Nasal congestion [Unknown]
  - Meniere^s disease [Unknown]

NARRATIVE: CASE EVENT DATE: 201509
